FAERS Safety Report 17059054 (Version 1)
Quarter: 2019Q4

REPORT INFORMATION
  Report Type: Spontaneous
  Country: US (occurrence: US)
  Receive Date: 20191121
  Receipt Date: 20191121
  Transmission Date: 20200122
  Serious: Yes (Hospitalization)
  Sender: FDA-Public Use
  Company Number: US-ASTRAZENECA-2019SF64258

PATIENT
  Sex: Female
  Weight: 3.9 kg

DRUGS (1)
  1. SYNAGIS [Suspect]
     Active Substance: PALIVIZUMAB
     Indication: ACUTE RESPIRATORY DISTRESS SYNDROME
     Dosage: MONTHLY
     Route: 030

REACTIONS (1)
  - Bronchiolitis [Unknown]
